FAERS Safety Report 23754789 (Version 1)
Quarter: 2024Q2

REPORT INFORMATION
  Report Type: Report from Study
  Country: CA (occurrence: CA)
  Receive Date: 20240418
  Receipt Date: 20240418
  Transmission Date: 20240716
  Serious: Yes (Hospitalization)
  Sender: FDA-Public Use
  Company Number: CA-JNJFOC-20231110082

PATIENT
  Age: 69 Year
  Sex: Male

DRUGS (2)
  1. SIMPONI [Suspect]
     Active Substance: GOLIMUMAB
     Indication: Rheumatoid arthritis
     Route: 011
     Dates: start: 20171115
  2. SIMPONI [Suspect]
     Active Substance: GOLIMUMAB
     Route: 011
     Dates: start: 20221204, end: 20240323

REACTIONS (5)
  - Femur fracture [Unknown]
  - Fall [Unknown]
  - Infection [Unknown]
  - Cellulitis [Unknown]
  - Off label use [Unknown]

NARRATIVE: CASE EVENT DATE: 20240101
